FAERS Safety Report 17040369 (Version 1)
Quarter: 2019Q4

REPORT INFORMATION
  Report Type: Spontaneous
  Country: US (occurrence: US)
  Receive Date: 20191117
  Receipt Date: 20191117
  Transmission Date: 20200122
  Serious: No
  Sender: FDA-Public Use
  Company Number: US-TORRENT-00009334

PATIENT
  Age: 59 Year
  Sex: Male
  Weight: 104 kg

DRUGS (2)
  1. LOSARTAN. [Suspect]
     Active Substance: LOSARTAN
     Indication: HYPERTENSION
     Route: 048
     Dates: start: 20190929
  2. LOSARTAN. [Suspect]
     Active Substance: LOSARTAN
     Indication: HYPERTENSION
     Dosage: LAST 6 YEARS
     Route: 048

REACTIONS (2)
  - Drug ineffective [Unknown]
  - Dizziness [Not Recovered/Not Resolved]
